FAERS Safety Report 8033574-2 (Version None)
Quarter: 2012Q1

REPORT INFORMATION
  Report Type: 
  Country: None (occurrence: None)
  Receive Date: 20120110
  Receipt Date: 20120103
  Transmission Date: 20120608
  Serious: Yes (Life-Threatening, Hospitalization, Other)
  Sender: FDA-Public Use
  Company Number: US-PFIZER INC-2010097407

PATIENT
  Age: 74 Year
  Sex: Female

DRUGS (5)
  1. ZOFRAN [Suspect]
     Indication: NAUSEA
     Dosage: 4 MG, UNK
     Route: 042
  2. AMIODARONE HCL [Suspect]
     Indication: VENTRICULAR TACHYCARDIA
     Dosage: UNK
     Route: 065
  3. CARVEDILOL [Suspect]
     Dosage: UNK
  4. FENTANYL [Concomitant]
     Indication: PAIN
     Dosage: 25 UG/H
     Route: 062
  5. CITALOPRAM [Suspect]
     Dosage: UNK

REACTIONS (6)
  - SINUS BRADYCARDIA [None]
  - VENTRICULAR TACHYCARDIA [None]
  - LONG QT SYNDROME [None]
  - TORSADE DE POINTES [None]
  - HYPOKALAEMIA [None]
  - HYPOMAGNESAEMIA [None]
